FAERS Safety Report 15187127 (Version 2)
Quarter: 2019Q1

REPORT INFORMATION
  Report Type: Report from Study
  Country: US (occurrence: US)
  Receive Date: 20180723
  Receipt Date: 20190130
  Transmission Date: 20190417
  Serious: No
  Sender: FDA-Public Use
  Company Number: US-EXELIXIS-CABO-18013087

PATIENT
  Sex: Male

DRUGS (18)
  1. CLONIDINE HCL [Concomitant]
     Active Substance: CLONIDINE HYDROCHLORIDE
  2. MEMANTINE HCL [Concomitant]
     Active Substance: MEMANTINE
  3. CLOTRIMAZOLE. [Concomitant]
     Active Substance: CLOTRIMAZOLE
  4. CABOMETYX [Suspect]
     Active Substance: CABOZANTINIB S-MALATE
     Indication: RENAL CANCER
     Dosage: 40 MG, QD
     Route: 048
  5. CLONAZEPAM. [Concomitant]
     Active Substance: CLONAZEPAM
  6. DRONABINOL. [Concomitant]
     Active Substance: DRONABINOL
  7. PREDNISONE. [Concomitant]
     Active Substance: PREDNISONE
  8. HYDROCODONE [Concomitant]
     Active Substance: HYDROCODONE
  9. DEXAMETHASON [Concomitant]
     Active Substance: DEXAMETHASONE
  10. MIRTAZAPIN [Concomitant]
     Active Substance: MIRTAZAPINE
  11. NYSTATIN. [Concomitant]
     Active Substance: NYSTATIN
  12. CABOMETYX [Suspect]
     Active Substance: CABOZANTINIB S-MALATE
     Dosage: 20 MG, QD
     Route: 048
  13. GABAPENTIN. [Concomitant]
     Active Substance: GABAPENTIN
  14. BUPROPION HCL [Concomitant]
     Active Substance: BUPROPION HYDROCHLORIDE
  15. FLUCONAZOLE. [Concomitant]
     Active Substance: FLUCONAZOLE
  16. LOSARTAN POTASSIUM. [Concomitant]
     Active Substance: LOSARTAN POTASSIUM
  17. FENTANYL. [Concomitant]
     Active Substance: FENTANYL
  18. LACTULOSE. [Concomitant]
     Active Substance: LACTULOSE

REACTIONS (4)
  - Fatigue [Not Recovered/Not Resolved]
  - Cancer pain [Not Recovered/Not Resolved]
  - Constipation [Not Recovered/Not Resolved]
  - Feeling cold [Not Recovered/Not Resolved]
